FAERS Safety Report 24392086 (Version 1)
Quarter: 2024Q4

REPORT INFORMATION
  Report Type: Spontaneous
  Country: US (occurrence: None)
  Receive Date: 20241002
  Receipt Date: 20241002
  Transmission Date: 20250115
  Serious: Yes (Hospitalization)
  Sender: Public
  Company Number: None

PATIENT
  Age: 59 Year
  Sex: Male
  Weight: 68.04 kg

DRUGS (19)
  1. DUPIXENT [Suspect]
     Active Substance: DUPILUMAB
     Indication: Dermatitis
     Dosage: OTHER QUANTITY : 2 PEN^S ;?OTHER FREQUENCY : 1 EVERY TWO WEEKS ;?OTHER ROUTE : INJECTION;?
     Route: 050
     Dates: start: 20240429, end: 20240814
  2. DUPIXENT [Suspect]
     Active Substance: DUPILUMAB
     Indication: Dermatitis atopic
  3. RINVOQ [Suspect]
     Active Substance: UPADACITINIB
  4. HYDROCODONE [Concomitant]
  5. CYCLOBENZAPRINE [Concomitant]
  6. DICLOFENAC [Concomitant]
     Active Substance: DICLOFENAC
  7. DOXYCYCLINE HYCLATE [Concomitant]
     Active Substance: DOXYCYCLINE HYCLATE
  8. DULOXETINE HYDROCHLORIDE [Concomitant]
     Active Substance: DULOXETINE HYDROCHLORIDE
  9. ETODOLAC [Concomitant]
     Active Substance: ETODOLAC
  10. FLUTICASONE [Concomitant]
  11. GABAPENTIN [Concomitant]
  12. LIDOCAINE [Concomitant]
  13. OMEPRAZOLE [Concomitant]
     Active Substance: OMEPRAZOLE
  14. OXCARBAZEPINE [Concomitant]
  15. PRAZOSIN [Concomitant]
  16. ROSUVASTATIN [Concomitant]
  17. TRIAMCINOLONE ACETONIDE [Concomitant]
     Active Substance: TRIAMCINOLONE ACETONIDE
  18. CARBOXYMETHYLCELLULOSE [Concomitant]
     Active Substance: CARBOXYMETHYLCELLULOSE
  19. PREDNISONE [Concomitant]

REACTIONS (8)
  - Drug hypersensitivity [None]
  - Left atrial enlargement [None]
  - Tachycardia [None]
  - Weight increased [None]
  - Abdominal pain [None]
  - Hypertension [None]
  - Pulmonary congestion [None]
  - Wheezing [None]

NARRATIVE: CASE EVENT DATE: 20240814
